FAERS Safety Report 16644485 (Version 1)
Quarter: 2019Q3

REPORT INFORMATION
  Report Type: Report from Study
  Country: HN (occurrence: HN)
  Receive Date: 20190729
  Receipt Date: 20190729
  Transmission Date: 20191004
  Serious: Yes (Other)
  Sender: FDA-Public Use
  Company Number: PHHY2019HN163519

PATIENT
  Age: 78 Year
  Sex: Male

DRUGS (2)
  1. DIOVAN [Suspect]
     Active Substance: VALSARTAN
     Indication: PRODUCT USED FOR UNKNOWN INDICATION
     Dosage: 320 MG, UNK
     Route: 065
  2. EXFORGE [Suspect]
     Active Substance: AMLODIPINE BESYLATE\VALSARTAN
     Indication: PRODUCT USED FOR UNKNOWN INDICATION
     Dosage: 1 DF, (10 MG AMLODIPINE, 320 MG VALSARTAN)
     Route: 065

REACTIONS (5)
  - Hypertension [Unknown]
  - Incorrect dose administered [Unknown]
  - Renal impairment [Unknown]
  - Abnormal behaviour [Unknown]
  - Diabetes mellitus [Unknown]
